FAERS Safety Report 4974770-8 (Version None)
Quarter: 2006Q2

REPORT INFORMATION
  Report Type: 
  Country: None (occurrence: None)
  Receive Date: 20060417
  Receipt Date: 20051001
  Transmission Date: 20061013
  Serious: Yes (Hospitalization, Disabling, Other)
  Sender: FDA-Public Use
  Company Number: US-MERCK-0510USA01831

PATIENT
  Age: 36 Year
  Sex: Male
  Weight: 68 kg

DRUGS (2)
  1. VIOXX [Suspect]
     Indication: PAIN
     Route: 048
     Dates: start: 20000101, end: 20010101
  2. VIOXX [Suspect]
     Indication: SKIN ULCER
     Route: 048
     Dates: start: 20000101, end: 20010101

REACTIONS (11)
  - ANGINA PECTORIS [None]
  - ANGIOPATHY [None]
  - ARRHYTHMIA [None]
  - BRONCHITIS [None]
  - CARDIOVASCULAR DISORDER [None]
  - CEREBROVASCULAR ACCIDENT [None]
  - MYOCARDIAL INFARCTION [None]
  - ORGAN FAILURE [None]
  - PULMONARY EMBOLISM [None]
  - RENAL FAILURE [None]
  - THROMBOSIS [None]
